FAERS Safety Report 7539621-6 (Version None)
Quarter: 2011Q2

REPORT INFORMATION
  Report Type: 
  Country: None (occurrence: None)
  Receive Date: 20110610
  Receipt Date: 20110603
  Transmission Date: 20111010
  Serious: Yes (Hospitalization)
  Sender: FDA-Public Use
  Company Number: FR-BRISTOL-MYERS SQUIBB COMPANY-15817315

PATIENT
  Age: 54 Year
  Sex: Male
  Weight: 66 kg

DRUGS (3)
  1. CISPLATIN [Suspect]
     Indication: NON-SMALL CELL LUNG CANCER
     Dosage: NO OF INF:4
     Route: 042
     Dates: start: 20110302, end: 20110520
  2. GEMCITABINE [Suspect]
     Indication: NON-SMALL CELL LUNG CANCER
     Dosage: NO OF INF:8 DAY 1 AND DAY 8 OF EACH 3 WK CYCLE
     Route: 042
     Dates: start: 20110302, end: 20110526
  3. CETUXIMAB [Suspect]
     Indication: NON-SMALL CELL LUNG CANCER
     Dosage: NO OF INF:13
     Route: 042
     Dates: start: 20110302, end: 20110526

REACTIONS (1)
  - ABDOMINAL PAIN [None]
